FAERS Safety Report 19242191 (Version 2)
Quarter: 2021Q2

REPORT INFORMATION
  Report Type: Spontaneous
  Country: US (occurrence: US)
  Receive Date: 20210510
  Receipt Date: 20210520
  Transmission Date: 20210717
  Serious: Yes (Death, Life-Threatening, Hospitalization, Other)
  Sender: FDA-Public Use
  Company Number: US-TEVA-2021-US-1908872

PATIENT
  Age: 61 Year
  Sex: Female
  Weight: 74.4 kg

DRUGS (4)
  1. ALYQ [Suspect]
     Active Substance: TADALAFIL
     Indication: PRODUCT USED FOR UNKNOWN INDICATION
     Route: 065
     Dates: end: 20210318
  2. REMODULIN [Suspect]
     Active Substance: TREPROSTINIL
     Dosage: CONTINUOUS, 0.040 G/KG
     Route: 041
     Dates: start: 20201014, end: 20210419
  3. REMODULIN [Suspect]
     Active Substance: TREPROSTINIL
     Indication: PULMONARY ARTERIAL HYPERTENSION
     Dosage: CONTINUOUS
     Route: 041
     Dates: start: 201601
  4. REMODULIN [Suspect]
     Active Substance: TREPROSTINIL
     Dosage: CONTINUOUS
     Route: 041
     Dates: start: 20201002

REACTIONS (6)
  - Cardiac arrest [Fatal]
  - Hypoxia [Not Recovered/Not Resolved]
  - Respiratory arrest [Fatal]
  - Syncope [Not Recovered/Not Resolved]
  - Acute respiratory failure [Not Recovered/Not Resolved]
  - Pulmonary arterial hypertension [Fatal]

NARRATIVE: CASE EVENT DATE: 20210408
